FAERS Safety Report 7331700-1 (Version None)
Quarter: 2011Q1

REPORT INFORMATION
  Report Type: 
  Country: None (occurrence: None)
  Receive Date: 20110304
  Receipt Date: 20110222
  Transmission Date: 20110831
  Serious: Yes (Other)
  Sender: FDA-Public Use
  Company Number: IT-NOVOPROD-323168

PATIENT
  Age: 62 Year
  Sex: Male
  Weight: 90 kg

DRUGS (8)
  1. OMEGA-3 FATTY ACIDS [Concomitant]
     Indication: DYSLIPIDAEMIA
  2. LANTUS [Concomitant]
     Dosage: 40 U, QD
  3. VICTOZA [Suspect]
     Dosage: 0.6 MG, QD
     Route: 065
     Dates: start: 20110206, end: 20110209
  4. CALCIUM CHANNEL BLOCKERS [Concomitant]
     Indication: HYPERTENSION
  5. ACE INHIBITORS [Concomitant]
     Indication: HYPERTENSION
     Dosage: UNK
  6. INSULIN [Concomitant]
     Indication: TYPE 2 DIABETES MELLITUS
  7. EZETIMIBE/SIMVASTATIN [Concomitant]
     Indication: DYSLIPIDAEMIA
  8. VICTOZA [Suspect]
     Indication: TYPE 2 DIABETES MELLITUS
     Dosage: 0.6 MG, QD
     Route: 065
     Dates: start: 20101201

REACTIONS (1)
  - DIVERTICULUM INTESTINAL [None]
